FAERS Safety Report 25956401 (Version 1)
Quarter: 2025Q4

REPORT INFORMATION
  Report Type: Spontaneous
  Country: CN (occurrence: CN)
  Receive Date: 20251024
  Receipt Date: 20251024
  Transmission Date: 20260118
  Serious: Yes (Other)
  Sender: ROCHE
  Company Number: CN-ROCHE-10000413971

PATIENT
  Age: 64 Year
  Sex: Male

DRUGS (9)
  1. MYCOPHENOLATE MOFETIL [Suspect]
     Active Substance: MYCOPHENOLATE MOFETIL
     Indication: Neuromyelitis optica spectrum disorder
     Route: 048
     Dates: start: 202403
  2. SATRALIZUMAB [Concomitant]
     Active Substance: SATRALIZUMAB
     Indication: Neuromyelitis optica spectrum disorder
     Dosage: FIRST THREE SUBCUTANEOUS INJECTIONS OF 120 MG EACH AT WEEKS 0, 2, AND 4, FOLLOWED BY A MAINTENANCE D
     Route: 058
     Dates: start: 202403
  3. PREDNISONE [Concomitant]
     Active Substance: PREDNISONE
     Route: 048
     Dates: start: 202403, end: 202411
  4. METHYLPREDNISOLONE SODIUM SUCCINATE [Concomitant]
     Active Substance: METHYLPREDNISOLONE SODIUM SUCCINATE
  5. MOXIFLOXACIN [Concomitant]
     Active Substance: MOXIFLOXACIN
  6. GANCICLOVIR [Concomitant]
     Active Substance: GANCICLOVIR
  7. INEBILIZUMAB [Concomitant]
     Active Substance: INEBILIZUMAB
     Dates: start: 20230524
  8. INEBILIZUMAB [Concomitant]
     Active Substance: INEBILIZUMAB
     Dates: start: 20230508
  9. INEBILIZUMAB [Concomitant]
     Active Substance: INEBILIZUMAB
     Dates: start: 20231122

REACTIONS (2)
  - Neuromyelitis optica spectrum disorder [Unknown]
  - Off label use [Unknown]
